FAERS Safety Report 8575072-3 (Version None)
Quarter: 2012Q3

REPORT INFORMATION
  Report Type: 
  Country: None (occurrence: None)
  Receive Date: 20120807
  Receipt Date: 20120726
  Transmission Date: 20120928
  Serious: Yes (Death, Other)
  Sender: FDA-Public Use
  Company Number: US-BAYER-201031063NA

PATIENT
  Age: 18 Year
  Sex: Female
  Weight: 147 kg

DRUGS (9)
  1. LISINOPRIL [Concomitant]
     Indication: HYPERTENSION
     Dates: start: 20070801
  2. LEVAQUIN [Concomitant]
     Indication: PNEUMONIA
  3. PREDNISONE [Concomitant]
  4. LEVAQUIN [Concomitant]
     Indication: BRONCHITIS
     Dates: start: 20080604
  5. ROBITUSSIN AC [CODEINE PHOSPHATE,GUAIFENESIN] [Concomitant]
     Indication: COUGH
     Route: 048
     Dates: start: 20080604
  6. GLUCOPHAGE [Concomitant]
     Indication: GLUCOSE TOLERANCE IMPAIRED
     Route: 048
  7. YASMIN [Suspect]
     Indication: MENSTRUATION IRREGULAR
     Dosage: UNK
     Dates: start: 20070801, end: 20080601
  8. ALBUTEROL [Concomitant]
     Dosage: EVERY 4-6 HRS
  9. AUGMENTIN '500' [Concomitant]
     Dates: start: 20080515

REACTIONS (9)
  - DYSPNOEA [None]
  - VOMITING [None]
  - CHEST PAIN [None]
  - ACUTE RESPIRATORY FAILURE [None]
  - DEEP VEIN THROMBOSIS [None]
  - CONVULSION [None]
  - COUGH [None]
  - GAIT DISTURBANCE [None]
  - PULMONARY EMBOLISM [None]
